FAERS Safety Report 24928393 (Version 5)
Quarter: 2025Q2

REPORT INFORMATION
  Report Type: Spontaneous
  Country: KR (occurrence: KR)
  Receive Date: 20250205
  Receipt Date: 20250424
  Transmission Date: 20250716
  Serious: Yes (Hospitalization)
  Sender: SAMSUNG BIOEPIS
  Company Number: KR-SAMSUNG BIOEPIS-SB-2025-04461

PATIENT
  Age: 71 Year
  Sex: Male
  Weight: 53 kg

DRUGS (55)
  1. TRASTUZUMAB [Suspect]
     Active Substance: TRASTUZUMAB
     Indication: Gallbladder cancer
     Route: 042
     Dates: start: 20241203, end: 20250401
  2. TRASTUZUMAB [Suspect]
     Active Substance: TRASTUZUMAB
     Route: 042
     Dates: start: 20250407
  3. GEMCITABINE [Suspect]
     Active Substance: GEMCITABINE
     Indication: Gallbladder cancer
     Route: 042
     Dates: start: 20241203, end: 20250127
  4. GEMCITABINE [Suspect]
     Active Substance: GEMCITABINE
     Route: 042
     Dates: end: 20250225
  5. GEMCITABINE [Suspect]
     Active Substance: GEMCITABINE
     Dates: start: 20250303, end: 20250401
  6. GEMCITABINE [Suspect]
     Active Substance: GEMCITABINE
     Route: 042
     Dates: start: 20250407
  7. CISPLATIN [Suspect]
     Active Substance: CISPLATIN
     Indication: Gallbladder cancer
     Route: 042
     Dates: start: 20241203, end: 20250127
  8. CISPLATIN [Suspect]
     Active Substance: CISPLATIN
     Route: 042
     Dates: end: 20250225
  9. CISPLATIN [Suspect]
     Active Substance: CISPLATIN
     Dates: start: 20250303, end: 20250401
  10. CISPLATIN [Suspect]
     Active Substance: CISPLATIN
     Route: 042
     Dates: start: 20250407
  11. NIVOLUMAB [Suspect]
     Active Substance: NIVOLUMAB
     Indication: Gallbladder cancer
     Route: 042
     Dates: start: 20241203, end: 20250401
  12. NIVOLUMAB [Suspect]
     Active Substance: NIVOLUMAB
     Route: 042
     Dates: start: 20250407
  13. EZETIMIBE\ROSUVASTATIN [Concomitant]
     Active Substance: EZETIMIBE\ROSUVASTATIN
     Indication: Product used for unknown indication
     Dosage: 10/10 MG;
     Dates: start: 20241203
  14. TRIMETAZIDINE DIHYDROCHLORIDE [Concomitant]
     Active Substance: TRIMETAZIDINE DIHYDROCHLORIDE
     Indication: Product used for unknown indication
     Dates: start: 20241203
  15. SUPRAX [Concomitant]
     Active Substance: CEFIXIME
     Indication: Product used for unknown indication
     Dates: start: 20241203
  16. SUPRAX [Concomitant]
     Active Substance: CEFIXIME
     Dates: start: 20241223
  17. SUPRAX [Concomitant]
     Active Substance: CEFIXIME
     Dosage: POWDER;
     Dates: start: 20250114
  18. OXYCODONE HYDROCHLORIDE [Concomitant]
     Active Substance: OXYCODONE HYDROCHLORIDE
     Indication: Product used for unknown indication
     Dates: start: 20241203
  19. Dulackhan [Concomitant]
     Indication: Product used for unknown indication
     Dates: start: 20241112
  20. Dulackhan [Concomitant]
     Dates: start: 20241220
  21. XARELTO [Concomitant]
     Active Substance: RIVAROXABAN
     Indication: Product used for unknown indication
     Dates: start: 20241127
  22. GLICLAZIDE [Concomitant]
     Active Substance: GLICLAZIDE
     Indication: Product used for unknown indication
     Dates: start: 20241127
  23. JANUVIA [Concomitant]
     Active Substance: SITAGLIPTIN PHOSPHATE
     Indication: Product used for unknown indication
     Dates: start: 20241113
  24. Movizolo [Concomitant]
     Indication: Product used for unknown indication
     Dates: start: 20241113
  25. Fexuclue [Concomitant]
     Indication: Product used for unknown indication
     Dates: start: 20241113
  26. URUSA [Concomitant]
     Active Substance: URSODIOL
     Indication: Product used for unknown indication
     Dates: start: 20241113
  27. Megace F [Concomitant]
     Indication: Product used for unknown indication
     Dosage: SUSPENSION;
     Dates: start: 20241113
  28. Zemimet SR [Concomitant]
     Indication: Product used for unknown indication
     Dosage: 50/500 MG;
     Dates: start: 20241211
  29. RYZODEG 70/30 [Concomitant]
     Active Substance: INSULIN ASPART\INSULIN DEGLUDEC
     Indication: Product used for unknown indication
     Dosage: 100 I.U/ML;
     Dates: start: 20241211
  30. NEXIUM I.V. [Concomitant]
     Active Substance: ESOMEPRAZOLE SODIUM
     Indication: Product used for unknown indication
     Dates: start: 20241217
  31. NEXIUM I.V. [Concomitant]
     Active Substance: ESOMEPRAZOLE SODIUM
     Dates: start: 20241221
  32. MACPERAN [METOCLOPRAMIDE] [Concomitant]
     Indication: Product used for unknown indication
     Dates: start: 20241222
  33. GASMOTIN [LEVOSULPIRIDE] [Concomitant]
     Indication: Product used for unknown indication
     Dates: start: 20241217
  34. DONGKWANG MEROPENEM [Concomitant]
     Indication: Product used for unknown indication
     Dates: start: 20241218
  35. Magmil S [Concomitant]
     Indication: Product used for unknown indication
     Dates: start: 20241223
  36. PROPACETAMOL HYDROCHLORIDE [Concomitant]
     Active Substance: PROPACETAMOL HYDROCHLORIDE
     Indication: Product used for unknown indication
     Dates: start: 20241218
  37. PROPACETAMOL HYDROCHLORIDE [Concomitant]
     Active Substance: PROPACETAMOL HYDROCHLORIDE
     Dates: start: 20250402
  38. Uniperatam [Concomitant]
     Indication: Product used for unknown indication
     Dates: start: 20241214
  39. Uniperatam [Concomitant]
     Dates: start: 20250127
  40. AMINO ACIDS\DEXTROSE\ELECTROLYTES NOS\SOYBEAN OIL\VITAMINS [Concomitant]
     Active Substance: AMINO ACIDS\DEXTROSE\ELECTROLYTES NOS\SOYBEAN OIL\VITAMINS
     Indication: Product used for unknown indication
     Dates: start: 20241214
  41. AMINO ACIDS\DEXTROSE\ELECTROLYTES NOS\SOYBEAN OIL\VITAMINS [Concomitant]
     Active Substance: AMINO ACIDS\DEXTROSE\ELECTROLYTES NOS\SOYBEAN OIL\VITAMINS
     Dates: start: 20250226
  42. AMINO ACIDS\DEXTROSE\ELECTROLYTES NOS\SOYBEAN OIL\VITAMINS [Concomitant]
     Active Substance: AMINO ACIDS\DEXTROSE\ELECTROLYTES NOS\SOYBEAN OIL\VITAMINS
     Dates: start: 20250401
  43. Stavic [Concomitant]
     Indication: Product used for unknown indication
     Dosage: SUSPENSION;
     Dates: start: 20241214
  44. Teicocin [Concomitant]
     Indication: Product used for unknown indication
     Dates: start: 20241218
  45. DIMETHICONE\PANCRELIPASE\URSODIOL [Concomitant]
     Active Substance: DIMETHICONE\PANCRELIPASE\URSODIOL
     Indication: Product used for unknown indication
     Dates: start: 20241216
  46. DIMETHICONE\PANCRELIPASE\URSODIOL [Concomitant]
     Active Substance: DIMETHICONE\PANCRELIPASE\URSODIOL
     Dates: start: 20250401
  47. BENZYDAMINE HYDROCHLORIDE [Concomitant]
     Active Substance: BENZYDAMINE HYDROCHLORIDE
     Indication: Product used for unknown indication
     Dosage: SOLUTION;
     Dates: start: 20241217
  48. BENZYDAMINE HYDROCHLORIDE [Concomitant]
     Active Substance: BENZYDAMINE HYDROCHLORIDE
     Dates: start: 20250405
  49. POTASSIUM CHLORIDE [Concomitant]
     Active Substance: POTASSIUM CHLORIDE
     Indication: Product used for unknown indication
     Dates: start: 20250114
  50. Acetphen premix [Concomitant]
     Indication: Product used for unknown indication
     Dates: start: 20250114
  51. MIDAZOLAM [Concomitant]
     Active Substance: MIDAZOLAM
     Indication: Prophylaxis
     Dates: start: 20250402
  52. Alpit [Concomitant]
     Indication: Prophylaxis
     Dates: start: 20250402
  53. MEPERIDINE HYDROCHLORIDE [Concomitant]
     Active Substance: MEPERIDINE HYDROCHLORIDE
     Indication: Prophylaxis
     Dates: start: 20250402
  54. Peniramin [Concomitant]
     Indication: Prophylaxis
     Dates: start: 20250403
  55. HUMALOG [Concomitant]
     Active Substance: INSULIN LISPRO
     Indication: Product used for unknown indication
     Dates: start: 20250405

REACTIONS (4)
  - C-reactive protein increased [Recovered/Resolved]
  - Cholangitis [Recovered/Resolved]
  - Biliary obstruction [Not Recovered/Not Resolved]
  - Off label use [Unknown]

NARRATIVE: CASE EVENT DATE: 20250127
